FAERS Safety Report 7531471-X (Version None)
Quarter: 2011Q2

REPORT INFORMATION
  Report Type: 
  Country: None (occurrence: None)
  Receive Date: 20110531
  Receipt Date: 20110516
  Transmission Date: 20111010
  Serious: Yes (Hospitalization)
  Sender: FDA-Public Use
  Company Number: AUR-APL-2011-01309

PATIENT
  Age: 71 Year
  Sex: Male

DRUGS (2)
  1. TRAZODONE HCL [Suspect]
     Indication: DEMENTIA
  2. RISPERIDONE [Suspect]
     Indication: DEMENTIA

REACTIONS (7)
  - BLOOD OSMOLARITY DECREASED [None]
  - HYPONATRAEMIA [None]
  - SOMNOLENCE [None]
  - NORMOCHROMIC NORMOCYTIC ANAEMIA [None]
  - HYPOPITUITARISM [None]
  - LETHARGY [None]
  - BLOOD CORTISOL DECREASED [None]
